FAERS Safety Report 6756658-5 (Version None)
Quarter: 2010Q2

REPORT INFORMATION
  Report Type: 
  Country: None (occurrence: None)
  Receive Date: 20100604
  Receipt Date: 20100601
  Transmission Date: 20101027
  Serious: Yes (Disabling, Other)
  Sender: FDA-Public Use
  Company Number: US-MERCK-1006USA00660

PATIENT
  Sex: Female

DRUGS (1)
  1. FOSAMAX [Suspect]
     Route: 048
     Dates: start: 19990101, end: 20080101

REACTIONS (6)
  - BONE DENSITY DECREASED [None]
  - FEMUR FRACTURE [None]
  - INJURY [None]
  - LOWER LIMB FRACTURE [None]
  - OSTEOPOROSIS [None]
  - STRESS FRACTURE [None]
